FAERS Safety Report 15472155 (Version 3)
Quarter: 2018Q4

REPORT INFORMATION
  Report Type: Spontaneous
  Country: US (occurrence: US)
  Receive Date: 20181008
  Receipt Date: 20181114
  Transmission Date: 20190205
  Serious: No
  Sender: FDA-Public Use
  Company Number: US-AMGEN-USASP2018136842

PATIENT
  Age: 56 Year
  Sex: Female
  Weight: 52.61 kg

DRUGS (2)
  1. AIMOVIG [Suspect]
     Active Substance: ERENUMAB-AOOE
     Indication: MIGRAINE
     Dosage: UNSUCCESSFUL ATTEMPT
     Route: 065
     Dates: start: 20180928
  2. AIMOVIG [Suspect]
     Active Substance: ERENUMAB-AOOE

REACTIONS (1)
  - Accidental exposure to product [Unknown]

NARRATIVE: CASE EVENT DATE: 20180928
